FAERS Safety Report 7352961-9 (Version None)
Quarter: 2011Q1

REPORT INFORMATION
  Report Type: 
  Country: None (occurrence: None)
  Receive Date: 20110315
  Receipt Date: 20110307
  Transmission Date: 20110831
  Serious: Yes (Hospitalization)
  Sender: FDA-Public Use
  Company Number: FR-ROCHE-764595

PATIENT
  Sex: Male

DRUGS (4)
  1. SOMATULINE [Concomitant]
     Dosage: FORM: INJECTABLE SOLUTION
     Route: 058
     Dates: start: 20100401
  2. XELODA [Suspect]
     Route: 048
     Dates: start: 20110110, end: 20110114
  3. CREON [Concomitant]
     Dosage: 2500 U 9 DF DAILY.
     Route: 048
  4. NEXIUM [Concomitant]
     Dosage: REPORTED AS 6 DF DAILY.
     Route: 048

REACTIONS (3)
  - CYTOLYTIC HEPATITIS [None]
  - DECREASED APPETITE [None]
  - RENAL FAILURE ACUTE [None]
